FAERS Safety Report 6485152-4 (Version None)
Quarter: 2009Q4

REPORT INFORMATION
  Report Type: 
  Country: None (occurrence: None)
  Receive Date: 20091209
  Receipt Date: 20090612
  Transmission Date: 20100525
  Serious: No
  Sender: FDA-Public Use
  Company Number: US-AMGEN-KDL351444

PATIENT
  Sex: Female

DRUGS (3)
  1. ENBREL [Suspect]
     Indication: RHEUMATOID ARTHRITIS
     Route: 058
     Dates: start: 20090608
  2. ENBREL [Suspect]
     Indication: PSORIASIS
  3. SULFASALAZINE [Concomitant]
     Dates: start: 20081101

REACTIONS (3)
  - INSOMNIA [None]
  - IRRITABILITY [None]
  - RESTLESS LEGS SYNDROME [None]
